FAERS Safety Report 6012509-8 (Version None)
Quarter: 2008Q4

REPORT INFORMATION
  Report Type: 
  Country: None (occurrence: None)
  Receive Date: 20081218
  Receipt Date: 20081212
  Transmission Date: 20090506
  Serious: Yes (Hospitalization)
  Sender: FDA-Public Use
  Company Number: FR-ROXANE LABORATORIES, INC.-2008-RO-00415RO

PATIENT
  Age: 55 Year
  Sex: Female

DRUGS (7)
  1. PROPRANOLOL [Suspect]
     Indication: OESOPHAGEAL VARICES HAEMORRHAGE
     Dosage: 160MG
  2. PANTOPRAZOLE SODIUM [Suspect]
     Indication: OESOPHAGEAL VARICES HAEMORRHAGE
     Dosage: 40MG
  3. VENLAFAXINE HCL [Suspect]
     Indication: DEPRESSION
     Dosage: 75MG
  4. CALCIUM W/ COLECALCIFEROL [Suspect]
     Indication: OSTEOPOROSIS
  5. ALENDRONATE SODIUM [Suspect]
     Indication: OSTEOPOROSIS
  6. CEFOTAXIME [Concomitant]
     Indication: PNEUMONITIS
     Dosage: 4G
  7. LEVOFLOXACIN [Concomitant]
     Indication: PNEUMONITIS
     Dosage: 1000MG

REACTIONS (2)
  - DRUG INTERACTION [None]
  - PNEUMONITIS [None]
